FAERS Safety Report 8418145-8 (Version None)
Quarter: 2012Q2

REPORT INFORMATION
  Report Type: 
  Country: None (occurrence: None)
  Receive Date: 20120607
  Receipt Date: 20120529
  Transmission Date: 20120825
  Serious: Yes (Hospitalization)
  Sender: FDA-Public Use
  Company Number: JP-VERTEX PHARMACEUTICALS INC.-AE-2012-008087

PATIENT
  Age: 60 Year
  Sex: Female

DRUGS (3)
  1. PEGINTERFERON ALFA-2B [Concomitant]
     Route: 051
     Dates: start: 20120524, end: 20120528
  2. TELAVIC (TELAPREVIR) [Suspect]
     Route: 048
     Dates: start: 20120524, end: 20120528
  3. RIBAVIRIN [Concomitant]
     Route: 048
     Dates: start: 20120524, end: 20120528

REACTIONS (3)
  - BLOOD URIC ACID INCREASED [None]
  - VOMITING [None]
  - RENAL IMPAIRMENT [None]
